FAERS Safety Report 9759715 (Version 1)
Quarter: 2013Q4

REPORT INFORMATION
  Report Type: Spontaneous
  Country: US (occurrence: US)
  Receive Date: 20131216
  Receipt Date: 20131216
  Transmission Date: 20140711
  Serious: No
  Sender: FDA-Public Use
  Company Number: US-GILEAD-2010-0029008

PATIENT
  Age: 61 Year
  Sex: Female
  Weight: 109.77 kg

DRUGS (14)
  1. LETAIRIS [Suspect]
     Indication: PULMONARY ARTERIAL HYPERTENSION
     Route: 048
     Dates: start: 20080501
  2. HYDROCODONE W/APAP [Concomitant]
  3. PERCOCET [Concomitant]
  4. TRAMADOL [Concomitant]
  5. LEFLUNOMIDE [Concomitant]
  6. SULFASALAZINE [Concomitant]
  7. PLAQUENIL [Concomitant]
  8. LASIX [Concomitant]
  9. PREDNISONE [Concomitant]
  10. CITALOPRAM [Concomitant]
  11. IBUPROFEN [Concomitant]
  12. LEVOTHYROXINE [Concomitant]
  13. PRILOSEC [Concomitant]
  14. POTASSIUM [Concomitant]

REACTIONS (1)
  - Liver function test abnormal [Unknown]
